FAERS Safety Report 7618993-8 (Version None)
Quarter: 2011Q3

REPORT INFORMATION
  Report Type: 
  Country: None (occurrence: None)
  Receive Date: 20110718
  Receipt Date: 20110628
  Transmission Date: 20111222
  Serious: No
  Sender: FDA-Public Use
  Company Number: US-B.I. PHARMACEUTICALS,INC./RIDGEFIELD-2011-BP-16553BP

PATIENT
  Age: 35 Year
  Sex: Male

DRUGS (1)
  1. VIRAMUNE [Suspect]
     Indication: HIV INFECTION
     Route: 048
     Dates: start: 20110501

REACTIONS (1)
  - MEDICATION RESIDUE [None]
